FAERS Safety Report 6751971-X (Version None)
Quarter: 2010Q2

REPORT INFORMATION
  Report Type: 
  Country: None (occurrence: None)
  Receive Date: 20100602
  Receipt Date: 20100521
  Transmission Date: 20101027
  Serious: Yes (Death, Other)
  Sender: FDA-Public Use
  Company Number: MT-PFIZER INC-2010056357

PATIENT

DRUGS (1)
  1. VIAGRA [Suspect]
     Dosage: 25 MG, UNK
     Route: 050

REACTIONS (2)
  - CYTOGENETIC ABNORMALITY [None]
  - DRUG EXPOSURE DURING PREGNANCY [None]
